FAERS Safety Report 12872796 (Version 1)
Quarter: 2016Q4

REPORT INFORMATION
  Report Type: Spontaneous
  Country: FR (occurrence: FR)
  Receive Date: 20161021
  Receipt Date: 20161021
  Transmission Date: 20170207
  Serious: Yes (Hospitalization)
  Sender: FDA-Public Use
  Company Number: FR-PFIZER INC-2016483693

PATIENT
  Age: 30 Year
  Sex: Male

DRUGS (4)
  1. COCAINE [Concomitant]
     Active Substance: COCAINE
     Dosage: 1 G, DAILY
  2. XANAX [Suspect]
     Active Substance: ALPRAZOLAM
     Dosage: PROGRESSIVE INCREASED DOSAGE
     Route: 048
  3. XANAX [Suspect]
     Active Substance: ALPRAZOLAM
     Dosage: 1.5 MG (3 TABLETS OF 0.5 MG) 1X/DAY (MORNING)
     Route: 048
     Dates: start: 2008
  4. CANNABIS [Concomitant]
     Active Substance: CANNABIS SATIVA SUBSP. INDICA TOP
     Dosage: UNK

REACTIONS (3)
  - Abnormal behaviour [Recovered/Resolved]
  - Drug dependence [Recovering/Resolving]
  - Intentional product misuse [Recovering/Resolving]

NARRATIVE: CASE EVENT DATE: 20160924
